FAERS Safety Report 19139568 (Version 1)
Quarter: 2021Q2

REPORT INFORMATION
  Report Type: Spontaneous
  Country: US (occurrence: US)
  Receive Date: 20210415
  Receipt Date: 20210415
  Transmission Date: 20210717
  Serious: No
  Sender: FDA-Public Use
  Company Number: US-BIO PRODUCTS LABORATORY LTD-2109358

PATIENT
  Age: 53 Year
  Sex: Male

DRUGS (7)
  1. HUMAN NORMAL IMMUNOGLOBULIN [Suspect]
     Active Substance: HUMAN IMMUNOGLOBULIN G
     Indication: ADENOVIRUS INFECTION
     Route: 042
  2. MEDROXYPROGESTERONE ACETATE. [Concomitant]
     Active Substance: MEDROXYPROGESTERONE ACETATE
  3. PREDNISONE. [Concomitant]
     Active Substance: PREDNISONE
  4. ANTIBIOTICS (NOS) [Concomitant]
  5. TACROLIMUS. [Concomitant]
     Active Substance: TACROLIMUS
  6. IV FLUID [Concomitant]
  7. HUMAN NORMAL IMMUNOGLOBULIN [Suspect]
     Active Substance: HUMAN IMMUNOGLOBULIN G
     Indication: TUBULOINTERSTITIAL NEPHRITIS
     Route: 042

REACTIONS (3)
  - Drug effective for unapproved indication [Unknown]
  - Headache [Unknown]
  - Off label use [Unknown]
